FAERS Safety Report 7211513-1 (Version None)
Quarter: 2011Q1

REPORT INFORMATION
  Report Type: 
  Country: None (occurrence: None)
  Receive Date: 20110105
  Receipt Date: 20101222
  Transmission Date: 20110831
  Serious: Yes (Death, Hospitalization, Other)
  Sender: FDA-Public Use
  Company Number: PHHY2010JP65983

PATIENT
  Sex: Male
  Weight: 49 kg

DRUGS (6)
  1. CODEINE PHOSPHATE [Concomitant]
     Indication: RENAL CELL CARCINOMA
     Dosage: 6 G, UNK
     Route: 048
     Dates: start: 20100824
  2. MALFA [Concomitant]
     Dosage: 30 ML, UNK
     Route: 048
     Dates: start: 20100824
  3. KENALOG [Concomitant]
     Dosage: UNK
     Dates: start: 20100825
  4. LOXONIN [Concomitant]
     Indication: RENAL CELL CARCINOMA
     Dosage: 180 MG, UNK
     Route: 048
  5. AFINITOR [Suspect]
     Indication: METASTATIC RENAL CELL CARCINOMA
     Dosage: UNK
     Route: 048
     Dates: start: 20100816
  6. TAKEPRON [Concomitant]
     Indication: RENAL CELL CARCINOMA
     Dosage: 30 MG, UNK
     Route: 048
     Dates: start: 20100816

REACTIONS (6)
  - HAEMATOCHEZIA [None]
  - MELAENA [None]
  - ANAEMIA [None]
  - NEOPLASM MALIGNANT [None]
  - HAEMORRHAGIC DIATHESIS [None]
  - HAEMATURIA [None]
